FAERS Safety Report 14692937 (Version 2)
Quarter: 2018Q2

REPORT INFORMATION
  Report Type: Report from Study
  Country: CO (occurrence: CO)
  Receive Date: 20180329
  Receipt Date: 20180406
  Transmission Date: 20180711
  Serious: Yes (Hospitalization)
  Sender: FDA-Public Use
  Company Number: PHHY2018CO048974

PATIENT
  Sex: Female
  Weight: 53 kg

DRUGS (3)
  1. CARBOXYMETHYLCELLULOSE [Concomitant]
     Active Substance: CARBOXYMETHYLCELLULOSE
     Indication: DRY EYE
     Dosage: UNK
     Route: 065
  2. TOBI [Suspect]
     Active Substance: TOBRAMYCIN
     Indication: CYSTIC FIBROSIS
     Dosage: 300 MG, Q12H
     Route: 055
     Dates: start: 201711
  3. TOBI [Suspect]
     Active Substance: TOBRAMYCIN
     Indication: PSEUDOMONAS INFECTION

REACTIONS (9)
  - Nasal congestion [Unknown]
  - Pneumonia [Recovered/Resolved]
  - Chest pain [Unknown]
  - Back pain [Unknown]
  - Pain [Unknown]
  - Pyrexia [Unknown]
  - Blood creatinine increased [Unknown]
  - Malaise [Unknown]
  - Dyspnoea [Unknown]
